FAERS Safety Report 14026375 (Version 1)
Quarter: 2017Q3

REPORT INFORMATION
  Report Type: Spontaneous
  Country: FR (occurrence: FR)
  Receive Date: 20170929
  Receipt Date: 20170929
  Transmission Date: 20171128
  Serious: Yes (Other)
  Sender: FDA-Public Use
  Company Number: FR-MERCK KGAA-2028298

PATIENT
  Age: 66 Year
  Sex: Female

DRUGS (2)
  1. NOVOTHYROX [Suspect]
     Active Substance: LEVOTHYROXINE SODIUM
     Route: 048
     Dates: start: 201708
  2. NOVOTHYROX [Suspect]
     Active Substance: LEVOTHYROXINE SODIUM
     Indication: RADIOACTIVE IODINE THERAPY
     Route: 048
     Dates: start: 20170628, end: 20170816

REACTIONS (6)
  - Fatigue [Unknown]
  - Blood thyroid stimulating hormone decreased [Unknown]
  - Sleep disorder [Not Recovered/Not Resolved]
  - Hyperhidrosis [Not Recovered/Not Resolved]
  - Vertigo [Unknown]
  - Malaise [Unknown]

NARRATIVE: CASE EVENT DATE: 201708
